FAERS Safety Report 5313066-1 (Version None)
Quarter: 2007Q2

REPORT INFORMATION
  Report Type: 
  Country: None (occurrence: None)
  Receive Date: 20070424
  Receipt Date: 20070413
  Transmission Date: 20071010
  Serious: Yes (Other)
  Sender: FDA-Public Use
  Company Number: 36064

PATIENT
  Sex: Female

DRUGS (1)
  1. KETAMINE HCL [Suspect]

REACTIONS (5)
  - CONFUSIONAL STATE [None]
  - DELIRIUM [None]
  - INCORRECT DOSE ADMINISTERED [None]
  - MEDICATION ERROR [None]
  - WRONG TECHNIQUE IN DRUG USAGE PROCESS [None]
